FAERS Safety Report 9158714 (Version 1)
Quarter: 2013Q1

REPORT INFORMATION
  Report Type: Spontaneous
  Country: US (occurrence: US)
  Receive Date: 20130312
  Receipt Date: 20130312
  Transmission Date: 20140127
  Serious: Yes (Other)
  Sender: FDA-Public Use
  Company Number: US-US-EMD SERONO, INC.-233262J10USA

PATIENT
  Sex: Female

DRUGS (3)
  1. REBIF [Suspect]
     Indication: PRODUCT USED FOR UNKNOWN INDICATION
     Route: 058
     Dates: start: 20090609
  2. REBIF [Suspect]
     Route: 058
     Dates: start: 201302
  3. REBIF [Suspect]
     Route: 058
     Dates: start: 201302

REACTIONS (6)
  - Optic neuritis [Unknown]
  - Cognitive disorder [Unknown]
  - Dehydration [Unknown]
  - Multiple sclerosis relapse [Recovered/Resolved]
  - Gait disturbance [Unknown]
  - Drug administration error [Unknown]
